FAERS Safety Report 9199038 (Version 2)
Quarter: 2013Q2

REPORT INFORMATION
  Report Type: Spontaneous
  Country: US (occurrence: JP)
  Receive Date: 20130329
  Receipt Date: 20130408
  Transmission Date: 20140414
  Serious: Yes (Life-Threatening, Hospitalization)
  Sender: FDA-Public Use
  Company Number: US-MERCK-1105USA01236

PATIENT
  Age: 69 Year
  Sex: Female

DRUGS (12)
  1. SINGULAIR [Suspect]
     Indication: ASTHMA
     Dosage: 10 MG, QD
     Route: 048
     Dates: start: 20060417, end: 20060510
  2. MYSER (DIFLUPREDNATE) [Suspect]
     Indication: DERMATITIS
     Dosage: DAILY DOSAGE UNKNOWN
     Route: 061
     Dates: start: 20060508, end: 20060510
  3. ZYRTEC [Concomitant]
     Indication: HYPERSENSITIVITY
     Dosage: 10 MG, QD
     Route: 048
     Dates: start: 20060508, end: 20060510
  4. ZYRTEC [Concomitant]
     Indication: DERMATITIS
  5. CODEINE PHOSPHATE [Concomitant]
     Indication: COUGH
     Dosage: UNK, QID
     Route: 048
     Dates: start: 20060424, end: 20060430
  6. PREDONINE [Concomitant]
     Indication: ASTHMA
     Dosage: 20 MG, BID
     Route: 048
     Dates: start: 20060417, end: 20060509
  7. PREDONINE [Concomitant]
     Dosage: 50 MG, QD
     Dates: start: 20060513
  8. GASLON N [Concomitant]
     Indication: GASTROINTESTINAL DISORDER
     Dosage: 2 MG, BID
     Route: 048
     Dates: start: 20060417, end: 20060430
  9. NOVAMIN (PROCHLORPERAZINE MESYLATE) [Concomitant]
     Indication: PROPHYLAXIS OF NAUSEA AND VOMITING
     Dosage: UNK, QID
     Route: 048
     Dates: start: 20060424, end: 20060430
  10. MAGLAX [Concomitant]
     Indication: CONSTIPATION PROPHYLAXIS
     Dosage: UNK, QID, POR
     Route: 048
     Dates: start: 20060424, end: 20060430
  11. PULMICORT [Concomitant]
     Indication: ASTHMA
     Dosage: 400 MICROGRAM, BID,
     Route: 055
     Dates: start: 20060417, end: 20060510
  12. CLARITHROMYCIN [Concomitant]
     Indication: ASTHMA
     Dosage: 100 MG, BID

REACTIONS (2)
  - Toxic epidermal necrolysis [Recovering/Resolving]
  - Stevens-Johnson syndrome [Recovering/Resolving]
